FAERS Safety Report 15375509 (Version 1)
Quarter: 2018Q3

REPORT INFORMATION
  Report Type: Spontaneous
  Country: US (occurrence: US)
  Receive Date: 20180906
  Receipt Date: 20180906
  Transmission Date: 20181010
  Serious: Yes (Death)
  Sender: FDA-Public Use
  Company Number: None

PATIENT
  Age: 69 Year
  Sex: Female

DRUGS (5)
  1. TEMOZOLOMIDE 20MG CAP [Suspect]
     Active Substance: TEMOZOLOMIDE
     Indication: LUNG NEOPLASM MALIGNANT
     Dates: start: 20180809
  2. ETOPOSIDE. [Concomitant]
     Active Substance: ETOPOSIDE
  3. TEMOZOLOMIDE 100MG CAP [Suspect]
     Active Substance: TEMOZOLOMIDE
     Indication: LUNG NEOPLASM MALIGNANT
     Dosage: ?          OTHER FREQUENCY:QPM;?
     Route: 048
     Dates: start: 20180809, end: 201808
  4. IRONOTECAN [Concomitant]
  5. CARBOPLATIN. [Concomitant]
     Active Substance: CARBOPLATIN

REACTIONS (1)
  - Death [None]

NARRATIVE: CASE EVENT DATE: 20180815
